FAERS Safety Report 13182475 (Version 1)
Quarter: 2017Q1

REPORT INFORMATION
  Report Type: Spontaneous
  Country: US (occurrence: US)
  Receive Date: 20170203
  Receipt Date: 20170203
  Transmission Date: 20170428
  Serious: No
  Sender: FDA-Public Use
  Company Number: US-PFIZER INC-2017042208

PATIENT
  Sex: Male

DRUGS (1)
  1. XELJANZ [Suspect]
     Active Substance: TOFACITINIB CITRATE
     Dosage: 5 MG, DAILY (ONE TABLET DAILY)

REACTIONS (11)
  - Joint range of motion decreased [Unknown]
  - Back pain [Unknown]
  - Joint swelling [Unknown]
  - Muscular weakness [Unknown]
  - Arthralgia [Unknown]
  - Weight increased [Unknown]
  - Blood pressure increased [Unknown]
  - Extremity contracture [Unknown]
  - Peripheral swelling [Unknown]
  - Product use issue [Unknown]
  - Musculoskeletal stiffness [Unknown]
